FAERS Safety Report 6550660-4 (Version None)
Quarter: 2010Q1

REPORT INFORMATION
  Report Type: 
  Country: None (occurrence: None)
  Receive Date: 20100125
  Receipt Date: 20090519
  Transmission Date: 20100710
  Serious: No
  Sender: FDA-Public Use
  Company Number: US-TYCO HEALTHCARE/MALLINCKRODT-T200901078

PATIENT
  Sex: Male

DRUGS (1)
  1. OPTIRAY 350 [Suspect]
     Indication: INVESTIGATION
     Dosage: 75 ML (CC), SINGLE
     Route: 042
     Dates: start: 20090518, end: 20090518

REACTIONS (4)
  - ASTHENIA [None]
  - CHILLS [None]
  - DYSPNOEA [None]
  - WHEEZING [None]
